FAERS Safety Report 12827368 (Version 6)
Quarter: 2017Q3

REPORT INFORMATION
  Report Type: Report from Study
  Country: None (occurrence: NL)
  Receive Date: 20161007
  Receipt Date: 20170904
  Transmission Date: 20171127
  Serious: Yes (Hospitalization, Other)
  Sender: FDA-Public Use
  Company Number: NL-ABBVIE-16P-114-1744963-00

PATIENT
  Age: 59 Year
  Sex: Female

DRUGS (1)
  1. DUODOPA [Suspect]
     Active Substance: CARBIDOPA\LEVODOPA
     Indication: PARKINSON^S DISEASE
     Dosage: MD: 5, CD: 2, ED: 3
     Route: 050
     Dates: start: 20070530

REACTIONS (22)
  - Nightmare [Not Recovered/Not Resolved]
  - Mobility decreased [Recovering/Resolving]
  - Anxiety [Not Recovered/Not Resolved]
  - Stoma site erythema [Not Recovered/Not Resolved]
  - Purulence [Not Recovered/Not Resolved]
  - Constipation [Not Recovered/Not Resolved]
  - Stoma site irritation [Not Recovered/Not Resolved]
  - Urinary tract infection [Recovered/Resolved]
  - Disease progression [Unknown]
  - Stoma site discharge [Not Recovered/Not Resolved]
  - On and off phenomenon [Not Recovered/Not Resolved]
  - Musculoskeletal stiffness [Not Recovered/Not Resolved]
  - Bronchitis [Not Recovered/Not Resolved]
  - On and off phenomenon [Recovered/Resolved]
  - Musculoskeletal stiffness [Not Recovered/Not Resolved]
  - Stress [Not Recovered/Not Resolved]
  - Somnolence [Not Recovered/Not Resolved]
  - Gait inability [Not Recovered/Not Resolved]
  - Wound secretion [Not Recovered/Not Resolved]
  - Device dislocation [Not Recovered/Not Resolved]
  - Tension [Not Recovered/Not Resolved]
  - Emotional disorder [Not Recovered/Not Resolved]

NARRATIVE: CASE EVENT DATE: 20161002
